FAERS Safety Report 6000091-0 (Version None)
Quarter: 2008Q4

REPORT INFORMATION
  Report Type: 
  Country: None (occurrence: None)
  Receive Date: 20081215
  Receipt Date: 20081204
  Transmission Date: 20090506
  Serious: Yes (Life-Threatening, Hospitalization)
  Sender: FDA-Public Use
  Company Number: B0549821A

PATIENT
  Age: 70 Year
  Sex: Female

DRUGS (9)
  1. ZINACEF [Suspect]
     Indication: DRUG USE FOR UNKNOWN INDICATION
     Route: 042
     Dates: start: 20081201, end: 20081201
  2. FENTANYL-100 [Concomitant]
  3. LIDOCAINE [Concomitant]
  4. OXYGEN [Concomitant]
  5. ATROPINE [Concomitant]
  6. EPINEPHRINE [Concomitant]
  7. SOLU-MEDROL [Concomitant]
  8. KETANEST [Concomitant]
  9. PAVULON [Concomitant]

REACTIONS (5)
  - ANAPHYLACTIC SHOCK [None]
  - DYSGEUSIA [None]
  - MALAISE [None]
  - PRODUCT QUALITY ISSUE [None]
  - VENTRICULAR FIBRILLATION [None]
